FAERS Safety Report 13860890 (Version 1)
Quarter: 2017Q3

REPORT INFORMATION
  Report Type: Spontaneous
  Country: US (occurrence: US)
  Receive Date: 20170811
  Receipt Date: 20170811
  Transmission Date: 20171127
  Serious: Yes (Death)
  Sender: FDA-Public Use
  Company Number: None

PATIENT
  Age: 11 Year
  Sex: Female

DRUGS (5)
  1. ZOLINA [Concomitant]
  2. OPDIVO [Concomitant]
     Active Substance: NIVOLUMAB
  3. DEXAMETH PHO [Concomitant]
  4. VOTRIENT [Concomitant]
     Active Substance: PAZOPANIB HYDROCHLORIDE
  5. AVASTIN [Suspect]
     Active Substance: BEVACIZUMAB
     Indication: BRAIN NEOPLASM MALIGNANT
     Dosage: ROUTE - IV INFUSION
     Route: 042
     Dates: start: 201705, end: 201707

REACTIONS (1)
  - Death [None]

NARRATIVE: CASE EVENT DATE: 20170720
